FAERS Safety Report 7356299-5 (Version None)
Quarter: 2011Q1

REPORT INFORMATION
  Report Type: 
  Country: None (occurrence: None)
  Receive Date: 20110316
  Receipt Date: 20110311
  Transmission Date: 20110831
  Serious: Yes (Other)
  Sender: FDA-Public Use
  Company Number: US-ABBOTT-11P-163-0711298-00

PATIENT
  Age: 72 Year
  Sex: Male
  Weight: 95.34 kg

DRUGS (13)
  1. NIASPAN [Suspect]
     Indication: BLOOD CHOLESTEROL INCREASED
     Dosage: AT HOUR OF SLEEP W/ ASPIRIN; 1 IN 1 DAY
     Route: 048
     Dates: start: 20090101, end: 20090101
  2. NIASPAN [Suspect]
     Indication: BLOOD TRIGLYCERIDES INCREASED
     Dosage: AT HOUR OF SLEEP W/ ASPIRIN; 1 IN 1 DAY
     Route: 048
     Dates: start: 20090101, end: 20100101
  3. NIASPAN [Suspect]
     Dosage: AT HOUR OF SLEEP W/ ASPIRIN; 1 IN 1 DAY
     Route: 048
     Dates: start: 20100101, end: 20100101
  4. NIASPAN [Suspect]
     Dosage: AT HOUR OF SLEEP W/ ASPIRIN; 1 IN 1 DAY
     Route: 048
     Dates: end: 20110307
  5. SIMVASTATIN [Suspect]
     Indication: BLOOD TRIGLYCERIDES INCREASED
  6. FENOFIBRATE [Concomitant]
     Indication: BLOOD CHOLESTEROL INCREASED
     Dosage: DAILY IN AM
     Route: 048
  7. ASPIRIN [Concomitant]
     Route: 048
     Dates: end: 20110307
  8. NIASPAN [Suspect]
     Dosage: AT HOUR OF SLEEP W/ ASPIRIN; 1 IN 1 DAY
     Route: 048
     Dates: start: 20100101, end: 20100101
  9. TRAMADOL HCL [Concomitant]
     Indication: SPONDYLITIS
     Dosage: TAKES TWO DAILY + 1 QHS. PRN
  10. ASPIRIN [Concomitant]
     Indication: PROPHYLAXIS
     Dosage: TAKING 30 MINUTES BEFORE NIASPAN
     Route: 048
     Dates: start: 20090101
  11. NIASPAN [Suspect]
     Dosage: AT HOUR OF SLEEP W/ ASPIRIN 1 IN 1 DAY
     Route: 048
     Dates: start: 20100101, end: 20100101
  12. SIMVASTATIN [Suspect]
     Indication: BLOOD CHOLESTEROL INCREASED
     Dosage: STOPPED TAKING 3 WKS AGO
  13. LISINOPRIL [Concomitant]
     Indication: HYPERTENSION
     Dosage: IN AM
     Route: 048

REACTIONS (9)
  - MUSCLE RUPTURE [None]
  - BONE DISORDER [None]
  - BACK PAIN [None]
  - MIDDLE INSOMNIA [None]
  - PRURITUS [None]
  - HOT FLUSH [None]
  - ARTHRALGIA [None]
  - MYALGIA [None]
  - MUSCULOSKELETAL PAIN [None]
